FAERS Safety Report 8172874-2 (Version None)
Quarter: 2012Q1

REPORT INFORMATION
  Report Type: 
  Country: None (occurrence: None)
  Receive Date: 20120229
  Receipt Date: 20120229
  Transmission Date: 20120608
  Serious: Yes (Other)
  Sender: FDA-Public Use
  Company Number: None

PATIENT
  Sex: Male
  Weight: 60.781 kg

DRUGS (3)
  1. RIBAVIRIN [Concomitant]
  2. PEGASYS [Suspect]
     Indication: HEPATITIS C
     Route: 058
     Dates: start: 20111201, end: 20120228
  3. INCIVEK [Concomitant]

REACTIONS (2)
  - TREATMENT NONCOMPLIANCE [None]
  - HOSTILITY [None]
